FAERS Safety Report 4480453-3 (Version None)
Quarter: 2004Q4

REPORT INFORMATION
  Report Type: 
  Country: None (occurrence: None)
  Receive Date: 20041018
  Receipt Date: 20041005
  Transmission Date: 20050328
  Serious: Yes (Other)
  Sender: FDA-Public Use
  Company Number: A0521913A

PATIENT
  Age: 60 Year
  Sex: Female

DRUGS (2)
  1. NICODERM CQ [Suspect]
     Indication: SMOKING CESSATION THERAPY
     Dosage: 21 MG/ TRANSDERMAL
     Route: 062
     Dates: start: 20040729
  2. ATORVASTATIN CALCIUM [Concomitant]

REACTIONS (2)
  - CONFUSIONAL STATE [None]
  - HYPOTHYROIDISM [None]
